FAERS Safety Report 22535038 (Version 3)
Quarter: 2023Q2

REPORT INFORMATION
  Report Type: Report from Study
  Country: HU (occurrence: HU)
  Receive Date: 20230608
  Receipt Date: 20230623
  Transmission Date: 20230722
  Serious: Yes (Hospitalization)
  Sender: FDA-Public Use
  Company Number: HU-002147023-NVSC2023HU126902

PATIENT
  Age: 4 Year
  Sex: Female
  Weight: 15.3 kg

DRUGS (3)
  1. MEKINIST [Suspect]
     Active Substance: TRAMETINIB DIMETHYL SULFOXIDE
     Indication: Kaposiform haemangioendothelioma
     Dosage: 9 ML, QD (1 X 9 ML) SYRUP
     Route: 065
     Dates: start: 20220701, end: 2022
  2. MEKINIST [Suspect]
     Active Substance: TRAMETINIB DIMETHYL SULFOXIDE
     Indication: N-ras gene mutation
     Dosage: 9.6 ML, QD (1 X 9.6 ML) SYRUP
     Route: 065
     Dates: start: 20220824, end: 20230505
  3. MEKINIST [Suspect]
     Active Substance: TRAMETINIB DIMETHYL SULFOXIDE
     Dosage: 9.6 ML, QD (1 X 9.6 ML) SYRUP
     Route: 065
     Dates: start: 20220701, end: 20230527

REACTIONS (5)
  - Viral infection [Unknown]
  - Arthralgia [Unknown]
  - Headache [Unknown]
  - Full blood count abnormal [Unknown]
  - Weight fluctuation [Unknown]

NARRATIVE: CASE EVENT DATE: 20220101
